FAERS Safety Report 6141462-1 (Version None)
Quarter: 2009Q1

REPORT INFORMATION
  Report Type: 
  Country: None (occurrence: None)
  Receive Date: 20090321
  Receipt Date: 20090309
  Transmission Date: 20090719
  Serious: No
  Sender: FDA-Public Use
  Company Number: 20096475

PATIENT
  Age: 14 Year
  Sex: Male

DRUGS (1)
  1. LIORESAL [Suspect]
     Indication: MUSCLE SPASTICITY
     Dosage: MCG, DAILY; INTRATHECAL
     Route: 037

REACTIONS (3)
  - CEREBRAL VENTRICLE DILATATION [None]
  - CEREBROSPINAL FLUID RETENTION [None]
  - DISEASE COMPLICATION [None]
